FAERS Safety Report 10767427 (Version 1)
Quarter: 2015Q1

REPORT INFORMATION
  Report Type: Spontaneous
  Country: US (occurrence: US)
  Receive Date: 20150205
  Receipt Date: 20150205
  Transmission Date: 20150721
  Serious: Yes (Hospitalization)
  Sender: FDA-Public Use
  Company Number: US-INCYTE CORPORATION-2015IN000319

PATIENT
  Sex: Male

DRUGS (11)
  1. ASPIRIN. [Concomitant]
     Active Substance: ASPIRIN
  2. CIPROFLOXACIN HYDROCHLORIDE. [Concomitant]
     Active Substance: CIPROFLOXACIN HYDROCHLORIDE
     Dosage: 500 MG, UNK
  3. VITAMIN D3-HEVERT [Concomitant]
  4. MULTIVITAMIN                       /00097801/ [Concomitant]
     Active Substance: VITAMINS
  5. SERTRALINE [Concomitant]
     Active Substance: SERTRALINE HYDROCHLORIDE
  6. TOBRAMYCIN AND DEXAMETHASONE [Concomitant]
     Active Substance: DEXAMETHASONE\TOBRAMYCIN
  7. FOLIC ACID. [Concomitant]
     Active Substance: FOLIC ACID
  8. CALCIUM [Concomitant]
     Active Substance: CALCIUM
  9. ALLOPURINOL. [Concomitant]
     Active Substance: ALLOPURINOL
  10. JAKAFI [Suspect]
     Active Substance: RUXOLITINIB
     Indication: MYELOFIBROSIS
     Dosage: 10 MG; 2 TABLETS IN THE AM AND 1 TABLET IN THE PM
     Route: 048
     Dates: start: 20121024
  11. PEPCID [Concomitant]
     Active Substance: FAMOTIDINE

REACTIONS (2)
  - Adverse event [Unknown]
  - Pneumonia [Unknown]

NARRATIVE: CASE EVENT DATE: 2013
